FAERS Safety Report 9779109 (Version 1)
Quarter: 2013Q4

REPORT INFORMATION
  Report Type: Spontaneous
  Country: US (occurrence: US)
  Receive Date: 20131223
  Receipt Date: 20131223
  Transmission Date: 20140711
  Serious: No
  Sender: FDA-Public Use
  Company Number: US-ENDO PHARMACEUTICALS INC.-OPCR20130432

PATIENT
  Age: 32 Year
  Sex: Female

DRUGS (2)
  1. OPANA ER 15 MG [Suspect]
     Indication: PAIN
     Route: 048
     Dates: start: 201311
  2. OXYMORPHONE [Concomitant]
     Indication: BREAKTHROUGH PAIN

REACTIONS (1)
  - Drug effect decreased [Not Recovered/Not Resolved]
